FAERS Safety Report 26103045 (Version 1)
Quarter: 2025Q4

REPORT INFORMATION
  Report Type: Report from Study
  Country: US (occurrence: None)
  Receive Date: 20251129
  Receipt Date: 20251129
  Transmission Date: 20260117
  Serious: Yes (Hospitalization)
  Sender: UCB
  Company Number: US-UCBSA-2025036100

PATIENT

DRUGS (1)
  1. BIMEKIZUMAB [Suspect]
     Active Substance: BIMEKIZUMAB
     Indication: Axial spondyloarthritis
     Dosage: 160 MILLIGRAM, EV 4 WEEKS

REACTIONS (5)
  - Abdominal pain [Unknown]
  - Back pain [Unknown]
  - Injection site hypersensitivity [Unknown]
  - Injection site erythema [Unknown]
  - Drug ineffective [Unknown]
